FAERS Safety Report 5117652-3 (Version None)
Quarter: 2006Q3

REPORT INFORMATION
  Report Type: 
  Country: None (occurrence: None)
  Receive Date: 20060926
  Receipt Date: 20060906
  Transmission Date: 20061208
  Serious: Yes (Hospitalization)
  Sender: FDA-Public Use
  Company Number: FR200609000938

PATIENT
  Age: 93 Year
  Sex: Female

DRUGS (11)
  1. PROZAC [Suspect]
     Indication: DEPRESSION
     Dosage: ORAL
     Route: 048
     Dates: end: 20060628
  2. RABEPRAZOLE SODIUM [Concomitant]
  3. OLMIFON (ADRAFINIL)         TABLET, ENTERIC COATED [Concomitant]
  4. NOOTROPYL           (PIRACETAM) TABLET, ENTERIC COATED [Concomitant]
  5. ARTANE (TRIHEXYPHENIDYL HYDROCHLORIDE) SOLUTION [Concomitant]
  6. RISPERDAL    /SWE/(RISPERIDONE) TABLET, ENTERIC COATED [Concomitant]
  7. PLAVIX [Concomitant]
  8. JOSIR      (TAMSULOSIN HYDROCHLORIDE) [Concomitant]
  9. FORLAX(MACROGOL) [Concomitant]
  10. CIPRALAN [Concomitant]
  11. COVERSYL (PERINIDOPRIL) [Concomitant]

REACTIONS (8)
  - AGITATION [None]
  - BALANCE DISORDER [None]
  - CEREBRAL ISCHAEMIA [None]
  - EXTRAPYRAMIDAL DISORDER [None]
  - FAECALOMA [None]
  - FALL [None]
  - NERVOUS SYSTEM DISORDER [None]
  - SOMNOLENCE [None]
